FAERS Safety Report 5166297-8 (Version None)
Quarter: 2006Q4

REPORT INFORMATION
  Report Type: 
  Country: None (occurrence: None)
  Receive Date: 20061129
  Receipt Date: 20061024
  Transmission Date: 20070319
  Serious: Yes (Death, Hospitalization)
  Sender: FDA-Public Use
  Company Number: AND_AAPCC_2006_0974

PATIENT
  Age: 40 Year
  Sex: Male

DRUGS (1)
  1. METFORMIN [Suspect]
     Dosage: 130-170 TABLETS, 047

REACTIONS (13)
  - APNOEA [None]
  - BALANCE DISORDER [None]
  - BLOOD CREATININE INCREASED [None]
  - BLOOD GLUCOSE DECREASED [None]
  - BLOOD GLUCOSE INCREASED [None]
  - CARDIO-RESPIRATORY ARREST [None]
  - COMPLETED SUICIDE [None]
  - DIALYSIS [None]
  - DISORIENTATION [None]
  - HYPERHIDROSIS [None]
  - HYPOTENSION [None]
  - INCORRECT DOSE ADMINISTERED [None]
  - LACTIC ACIDOSIS [None]
